FAERS Safety Report 6581967-2 (Version None)
Quarter: 2010Q1

REPORT INFORMATION
  Report Type: 
  Country: None (occurrence: None)
  Receive Date: 20100215
  Receipt Date: 20100212
  Transmission Date: 20100710
  Serious: Yes (Other)
  Sender: FDA-Public Use
  Company Number: FR-ABBOTT-10P-056-0623534-00

PATIENT
  Sex: Female

DRUGS (1)
  1. HUMIRA [Suspect]
     Indication: RHEUMATOID ARTHRITIS
     Dosage: TOTAL OF 6 INJECTIONS
     Route: 058
     Dates: start: 20090901, end: 20091201

REACTIONS (2)
  - ORAL DISORDER [None]
  - ORAL LICHEN PLANUS [None]
